FAERS Safety Report 11528245 (Version 2)
Quarter: 2015Q4

REPORT INFORMATION
  Report Type: Report from Study
  Country: ES (occurrence: ES)
  Receive Date: 20150921
  Receipt Date: 20151104
  Transmission Date: 20160304
  Serious: Yes (Death, Other)
  Sender: FDA-Public Use
  Company Number: ES-BRISTOL-MYERS SQUIBB COMPANY-BMS-2015-061224

PATIENT
  Age: 54 Year
  Sex: Male
  Weight: 54 kg

DRUGS (3)
  1. IPILIMUMAB [Suspect]
     Active Substance: IPILIMUMAB
     Indication: SMALL CELL LUNG CANCER
     Dosage: UNK
     Route: 065
  2. CISPLATIN. [Suspect]
     Active Substance: CISPLATIN
     Indication: SMALL CELL LUNG CANCER
     Dosage: 121 MG, UNK
     Route: 065
     Dates: start: 20150603, end: 20150728
  3. ETOPOSIDE. [Suspect]
     Active Substance: ETOPOSIDE
     Indication: SMALL CELL LUNG CANCER
     Dosage: 489 MG, UNK
     Route: 065
     Dates: start: 20150603, end: 20150730

REACTIONS (2)
  - Sepsis [Fatal]
  - Neutrophil count decreased [Fatal]

NARRATIVE: CASE EVENT DATE: 20150807
